FAERS Safety Report 13358517 (Version 2)
Quarter: 2017Q2

REPORT INFORMATION
  Report Type: Spontaneous
  Country: US (occurrence: US)
  Receive Date: 20170322
  Receipt Date: 20170421
  Transmission Date: 20170830
  Serious: Yes (Hospitalization, Other)
  Sender: FDA-Public Use
  Company Number: US-AMGEN-USASP2017041772

PATIENT
  Age: 92 Year
  Sex: Female
  Weight: 76.19 kg

DRUGS (17)
  1. PREMARIN [Concomitant]
     Active Substance: ESTROGENS, CONJUGATED
     Dosage: UNK
     Route: 054
  2. PROCRIT [Suspect]
     Active Substance: ERYTHROPOIETIN
     Indication: ANAEMIA
     Dosage: 40000 UNIT, ONE TIME DOSE
     Route: 058
     Dates: start: 20170308, end: 20170308
  3. FLEET ENEMA [Concomitant]
     Active Substance: SODIUM PHOSPHATE, DIBASIC\SODIUM PHOSPHATE, MONOBASIC
     Indication: CONSTIPATION
     Dosage: UNK UNK, AS NECESSARY
     Route: 054
  4. TRAMADOL. [Concomitant]
     Active Substance: TRAMADOL
     Indication: PAIN
     Dosage: 50 MG, BID
     Route: 048
  5. MAGNESIUM OXIDE. [Concomitant]
     Active Substance: MAGNESIUM OXIDE
     Dosage: UNK
  6. ZOLOFT [Concomitant]
     Active Substance: SERTRALINE HYDROCHLORIDE
     Dosage: UNK
  7. AUGMENTIN [Concomitant]
     Active Substance: AMOXICILLIN\CLAVULANATE POTASSIUM
     Indication: PNEUMONIA
     Dosage: UNK (FOR 7 DAYS)
     Dates: start: 201702, end: 201703
  8. MELATONINE [Concomitant]
     Active Substance: MELATONIN
     Dosage: UNK
  9. BISACODYL. [Concomitant]
     Active Substance: BISACODYL
     Indication: CONSTIPATION
     Dosage: UNK UNK, AS NECESSARY
     Route: 054
  10. TRAMADOL. [Concomitant]
     Active Substance: TRAMADOL
     Indication: BACK PAIN
  11. CALCIUM CITRATE [Concomitant]
     Active Substance: CALCIUM CITRATE
     Dosage: UNK
  12. OMEPRAZOLE. [Concomitant]
     Active Substance: OMEPRAZOLE
     Dosage: UNK
  13. POLYETHYLENE GLYCOL 3350. [Concomitant]
     Active Substance: POLYETHYLENE GLYCOL 3350
     Dosage: UNK
  14. LASIX [Concomitant]
     Active Substance: FUROSEMIDE
     Dosage: UNK
  15. AMLODIPINE W/VALSARTAN [Concomitant]
     Active Substance: AMLODIPINE\VALSARTAN
     Indication: HYPERTENSION
     Dosage: UNK
  16. VALSARTAN. [Concomitant]
     Active Substance: VALSARTAN
     Dosage: UNK
  17. ZOFRAN [Concomitant]
     Active Substance: ONDANSETRON HYDROCHLORIDE
     Dosage: UNK UNK, AS NECESSARY

REACTIONS (10)
  - Dehydration [Not Recovered/Not Resolved]
  - Gastric cancer [Not Recovered/Not Resolved]
  - Respiration abnormal [Not Recovered/Not Resolved]
  - Weight decreased [Not Recovered/Not Resolved]
  - Unevaluable event [Not Recovered/Not Resolved]
  - Confusional state [Not Recovered/Not Resolved]
  - Decreased appetite [Not Recovered/Not Resolved]
  - Metastatic gastric cancer [Not Recovered/Not Resolved]
  - Moaning [Not Recovered/Not Resolved]
  - Feeling abnormal [Not Recovered/Not Resolved]

NARRATIVE: CASE EVENT DATE: 201703
